FAERS Safety Report 6518901-7 (Version None)
Quarter: 2009Q4

REPORT INFORMATION
  Report Type: 
  Country: None (occurrence: None)
  Receive Date: 20091218
  Receipt Date: 20091207
  Transmission Date: 20100525
  Serious: Yes (Disabling)
  Sender: FDA-Public Use
  Company Number: 2009AP000559

PATIENT
  Age: 78 Year
  Sex: Male

DRUGS (5)
  1. ALENDRONATE SODIUM [Suspect]
     Indication: OSTEOPOROSIS
     Dosage: 70 MG;QW PO
     Route: 047
     Dates: start: 20070417, end: 20080623
  2. BONIVA [Suspect]
     Indication: OSTEOPOROSIS
     Dosage: 150 MG;PO;QM
     Route: 048
     Dates: start: 20080623, end: 20081224
  3. NEOSTIGMINE (NEOSTIGMINE) [Concomitant]
  4. PREDNISOLONE [Concomitant]
  5. PYRIDOSTIGMINE (PYRIDOSTIGMINE) [Concomitant]

REACTIONS (3)
  - ANXIETY [None]
  - DEPRESSION [None]
  - FATIGUE [None]
